FAERS Safety Report 15400127 (Version 1)
Quarter: 2018Q3

REPORT INFORMATION
  Report Type: Spontaneous
  Country: US (occurrence: US)
  Receive Date: 20180919
  Receipt Date: 20180919
  Transmission Date: 20181010
  Serious: No
  Sender: FDA-Public Use
  Company Number: US-BION-007119

PATIENT
  Age: 56 Year
  Sex: Male
  Weight: 80.29 kg

DRUGS (3)
  1. ZYRTEC [Suspect]
     Active Substance: CETIRIZINE HYDROCHLORIDE
     Indication: HYPERSENSITIVITY
     Route: 048
  2. MORNIFLUMATE [Concomitant]
     Active Substance: MORNIFLUMATE
     Dosage: FROM 4 YEARS
  3. FISH OIL [Concomitant]
     Active Substance: FISH OIL
     Dosage: 1000 UNITS, YEARS

REACTIONS (1)
  - Drug ineffective [Not Recovered/Not Resolved]
